FAERS Safety Report 7936102-2 (Version None)
Quarter: 2011Q4

REPORT INFORMATION
  Report Type: 
  Country: None (occurrence: None)
  Receive Date: 20111123
  Receipt Date: 20111117
  Transmission Date: 20120403
  Serious: Yes (Hospitalization)
  Sender: FDA-Public Use
  Company Number: FR-BRISTOL-MYERS SQUIBB COMPANY-16241663

PATIENT
  Age: 46 Year
  Sex: Female

DRUGS (11)
  1. PREDNISOLONE [Concomitant]
  2. MAGNESIUM PIDOLATE [Concomitant]
  3. VICTOZA [Suspect]
     Route: 030
     Dates: start: 20110902, end: 20111011
  4. TOPIRAMATE [Concomitant]
  5. CRESTOR [Suspect]
     Route: 048
     Dates: start: 20110902, end: 20111011
  6. ASPIRIN [Concomitant]
  7. CALCIUM CARBONATE [Concomitant]
  8. NEXIUM [Concomitant]
  9. GLUCOPHAGE [Suspect]
     Dosage: DOSE INCREASED 1700MG INSTEAD 1500MG. DURATION LONGTIME
     Route: 048
     Dates: start: 20110201, end: 20111011
  10. URSOLVAN [Concomitant]
  11. IMURAN [Concomitant]

REACTIONS (2)
  - CYTOLYTIC HEPATITIS [None]
  - AUTOIMMUNE HEPATITIS [None]
